FAERS Safety Report 7240480-X (Version None)
Quarter: 2011Q1

REPORT INFORMATION
  Report Type: 
  Country: None (occurrence: None)
  Receive Date: 20110124
  Receipt Date: 20110122
  Transmission Date: 20110831
  Serious: No
  Sender: FDA-Public Use
  Company Number: US-PFIZER INC-2011015768

PATIENT
  Sex: Female
  Weight: 52.608 kg

DRUGS (11)
  1. GABAPENTIN [Concomitant]
     Dosage: 3600 MG, DAILY
  2. SOMA [Concomitant]
     Dosage: 1050 MG, 1X/DAY
  3. XANAX [Concomitant]
     Dosage: TWO OR THREE TABLETS ONCE A DAY AS NEEDED
  4. HYDROCODONE BITARTRATE AND ACETAMINOPHEN [Concomitant]
     Indication: NERVE INJURY
     Dosage: 500 MG/10 MG, UNK
  5. ENTOCORT EC [Concomitant]
     Dosage: 3 MG, UNK
  6. MIRTAZAPINE [Concomitant]
     Dosage: 15 MG ONCE A DAY AT BEDTIME
  7. ALLEGRA [Concomitant]
     Dosage: 180 MG, UNK
  8. ZOLPIDEM [Concomitant]
     Dosage: 10 MG ONCE A DAY AT NIGHT
  9. PRIMIDONE [Concomitant]
     Dosage: 250 MG ONCE A DAY AT NIGHT TIME
  10. CHANTIX [Suspect]
     Indication: SMOKING CESSATION THERAPY
     Dosage: 0.5 MG, 1X/DAY
     Route: 048
     Dates: start: 20110101
  11. PROMETHAZINE [Concomitant]
     Dosage: 25 MG ONCE A DAY OR AS NEEDED

REACTIONS (3)
  - NAUSEA [None]
  - HEADACHE [None]
  - INSOMNIA [None]
